FAERS Safety Report 5722187-0 (Version None)
Quarter: 2008Q2

REPORT INFORMATION
  Report Type: 
  Country: None (occurrence: None)
  Receive Date: 20080429
  Receipt Date: 20080418
  Transmission Date: 20081010
  Serious: Yes (Other)
  Sender: FDA-Public Use
  Company Number: FR-ELI_LILLY_AND_COMPANY-FR200804005181

PATIENT
  Age: 81 Year
  Sex: Female

DRUGS (5)
  1. CYMBALTA [Suspect]
     Indication: DEPRESSION
     Dosage: 60 MG, DAILY (1/D)
     Route: 048
     Dates: start: 20080301, end: 20080301
  2. METFORMIN HCL [Concomitant]
     Indication: DIABETES MELLITUS
     Route: 048
  3. NOVONORM [Concomitant]
     Indication: DIABETES MELLITUS
     Route: 048
  4. VASTAREL [Concomitant]
     Indication: TINNITUS
     Route: 048
  5. DAFALGAN [Concomitant]
     Indication: MYALGIA
     Route: 048

REACTIONS (4)
  - DISORIENTATION [None]
  - FALL [None]
  - HAEMATOMA [None]
  - HALLUCINATIONS, MIXED [None]
